FAERS Safety Report 4730066-0 (Version None)
Quarter: 2005Q3

REPORT INFORMATION
  Report Type: 
  Country: None (occurrence: None)
  Receive Date: 20050728
  Receipt Date: 20050725
  Transmission Date: 20060218
  Serious: Yes (Death)
  Sender: FDA-Public Use
  Company Number: USA-2005-0020818

PATIENT
  Age: 47 Year
  Sex: Male

DRUGS (1)
  1. MS CONTIN [Suspect]
     Indication: PAIN
     Dosage: 100 MG, BID, ORAL
     Route: 048

REACTIONS (2)
  - CARDIAC VALVE DISEASE [None]
  - GENERAL PHYSICAL HEALTH DETERIORATION [None]
